FAERS Safety Report 4324688-9 (Version None)
Quarter: 2004Q1

REPORT INFORMATION
  Report Type: 
  Country: None (occurrence: None)
  Receive Date: 20040323
  Receipt Date: 20040310
  Transmission Date: 20041129
  Serious: Yes (Hospitalization)
  Sender: FDA-Public Use
  Company Number: JP-JNJFOC-20040201531

PATIENT
  Age: 53 Year
  Sex: Female
  Weight: 50 kg

DRUGS (9)
  1. REMICADE [Suspect]
     Indication: RHEUMATOID ARTHRITIS
     Dosage: 3 MG/KG, 1 IN 1 AS NECESSARY, INTRAVENOUS DRIP
     Route: 041
     Dates: start: 20031104, end: 20031104
  2. REMICADE [Suspect]
     Indication: RHEUMATOID ARTHRITIS
     Dosage: 3 MG/KG, 1 IN 1 AS NECESSARY, INTRAVENOUS DRIP
     Route: 041
     Dates: start: 20031118, end: 20031118
  3. RHEUMATREX [Suspect]
     Indication: RHEUMATOID ARTHRITIS
     Dosage: 6 MG, IN 1 WEEK
     Dates: start: 20000610
  4. RUMATIL (ALL OTHER THERAPEUTIC PRODUCTS) [Concomitant]
  5. VOLTAREN [Concomitant]
  6. PROTECADINE (ALL OTHER THERAPEUTIC PRODUCTS) [Concomitant]
  7. RISCHIL (ALL OTHER THERAPEUTIC PRODUCTS) [Concomitant]
  8. BORTAL (ALL OTHER THERAPEUTIC PRODUCTS) [Concomitant]
  9. FUROTEKASON (ALL OTHER THERAPEUTIC PRODUCTS) [Concomitant]

REACTIONS (13)
  - ASPARTATE AMINOTRANSFERASE INCREASED [None]
  - BLOOD ALKALINE PHOSPHATASE INCREASED [None]
  - BRONCHITIS [None]
  - C-REACTIVE PROTEIN INCREASED [None]
  - COMPUTERISED TOMOGRAM ABNORMAL [None]
  - DISSEMINATED TUBERCULOSIS [None]
  - DRUG INTERACTION [None]
  - HAEMATOCRIT DECREASED [None]
  - HAEMOGLOBIN DECREASED [None]
  - NASOPHARYNGITIS [None]
  - PLATELET COUNT INCREASED [None]
  - PNEUMONIA [None]
  - X-RAY ABNORMAL [None]
